APPROVED DRUG PRODUCT: LEVETIRACETAM
Active Ingredient: LEVETIRACETAM
Strength: 1GM
Dosage Form/Route: TABLET;ORAL
Application: A078918 | Product #002 | TE Code: AB
Applicant: ZYDUS PHARMACEUTICALS USA INC
Approved: Apr 29, 2009 | RLD: No | RS: No | Type: RX